FAERS Safety Report 20558125 (Version 1)
Quarter: 2022Q1

REPORT INFORMATION
  Report Type: Spontaneous
  Country: CN (occurrence: CN)
  Receive Date: 20220307
  Receipt Date: 20220307
  Transmission Date: 20220424
  Serious: Yes (Other)
  Sender: FDA-Public Use
  Company Number: CN-UCBSA-2021035939

PATIENT
  Age: 45 Year
  Sex: Female
  Weight: 70 kg

DRUGS (1)
  1. CIMZIA [Suspect]
     Active Substance: CERTOLIZUMAB PEGOL
     Indication: Rheumatoid arthritis
     Dosage: 200 MILLIGRAM, EV 4 WEEKS
     Dates: start: 20210712, end: 202201

REACTIONS (7)
  - Caesarean section [Unknown]
  - Maternal exposure during pregnancy [Unknown]
  - Product use issue [Unknown]
  - Maternal exposure during breast feeding [Unknown]
  - Therapy interrupted [Unknown]
  - Inability to afford medication [Unknown]
  - Premature delivery [Unknown]

NARRATIVE: CASE EVENT DATE: 20210712
